FAERS Safety Report 6000448-8 (Version None)
Quarter: 2008Q4

REPORT INFORMATION
  Report Type: 
  Country: None (occurrence: None)
  Receive Date: 20081211
  Receipt Date: 20081211
  Transmission Date: 20090506
  Serious: Yes (Hospitalization)
  Sender: FDA-Public Use
  Company Number: None

PATIENT
  Age: 79 Year
  Sex: Male
  Weight: 110.4 kg

DRUGS (1)
  1. LEVAQUIN [Suspect]
     Indication: POSTOPERATIVE CARE
     Dosage: 750MG Q24 HOURS PO
     Route: 048
     Dates: start: 20081127, end: 20081205

REACTIONS (2)
  - BURSITIS [None]
  - TENDONITIS [None]
